FAERS Safety Report 9131892 (Version 1)
Quarter: 2013Q1

REPORT INFORMATION
  Report Type: Spontaneous
  Country: DE (occurrence: DE)
  Receive Date: 20130301
  Receipt Date: 20130301
  Transmission Date: 20140127
  Serious: Yes (Other)
  Sender: FDA-Public Use
  Company Number: DE-JNJFOC-20130208375

PATIENT
  Sex: Female

DRUGS (3)
  1. IMODIUM AKUT LINGUAL [Suspect]
     Route: 048
  2. IMODIUM AKUT LINGUAL [Suspect]
     Indication: DIARRHOEA
     Dosage: OVER A TIME PERIOD OF 4 WEEKS
     Route: 048
  3. SULTANOL [Concomitant]
     Indication: ASTHMA
     Route: 055

REACTIONS (7)
  - Asthma [Not Recovered/Not Resolved]
  - Dependence [Not Recovered/Not Resolved]
  - Gastrointestinal disorder [Unknown]
  - Drug prescribing error [Unknown]
  - Intentional drug misuse [Not Recovered/Not Resolved]
  - Overdose [Unknown]
  - Diarrhoea [Not Recovered/Not Resolved]
